FAERS Safety Report 7862182-9 (Version None)
Quarter: 2011Q4

REPORT INFORMATION
  Report Type: 
  Country: None (occurrence: None)
  Receive Date: 20111027
  Receipt Date: 20101102
  Transmission Date: 20120403
  Serious: Yes (Other)
  Sender: FDA-Public Use
  Company Number: US-AMGEN-QUU443833

PATIENT
  Age: 71 Year
  Sex: Male

DRUGS (6)
  1. NEXIUM [Concomitant]
  2. ENBREL [Suspect]
     Indication: PSORIATIC ARTHROPATHY
     Dosage: 25 MG, 2 TIMES/WK
     Route: 058
     Dates: start: 20030205
  3. SIMVASTATIN [Concomitant]
  4. ASPIRIN [Concomitant]
  5. ENBREL [Suspect]
     Indication: PSORIASIS
     Dosage: 25 MG, QWK
     Route: 058
     Dates: start: 20031125, end: 20061001
  6. ENBREL [Suspect]
     Dosage: 50 MG, 2 TIMES/WK
     Dates: start: 20070207

REACTIONS (2)
  - ARTHRALGIA [None]
  - THROMBOCYTOPENIA [None]
